FAERS Safety Report 6978827-1 (Version None)
Quarter: 2010Q3

REPORT INFORMATION
  Report Type: 
  Country: None (occurrence: None)
  Receive Date: 20100913
  Receipt Date: 20100903
  Transmission Date: 20110219
  Serious: Yes (Other)
  Sender: FDA-Public Use
  Company Number: GXKR2010NL09225

PATIENT
  Age: 87 Year
  Sex: Female

DRUGS (2)
  1. ATENOLOL+CHLORTHALIDONE (NGX) [Suspect]
     Indication: HYPERTENSION
     Route: 065
  2. LOSARTAN POTASSIUM [Concomitant]
     Dosage: 50 MG, BID

REACTIONS (13)
  - ABASIA [None]
  - ANXIETY [None]
  - ASTHENIA [None]
  - BACK PAIN [None]
  - CONFUSIONAL STATE [None]
  - DRY MOUTH [None]
  - FATIGUE [None]
  - HYPOAESTHESIA [None]
  - HYPONATRAEMIA [None]
  - MALAISE [None]
  - NAUSEA [None]
  - URINARY INCONTINENCE [None]
  - URINARY RETENTION [None]
